FAERS Safety Report 16421502 (Version 1)
Quarter: 2019Q2

REPORT INFORMATION
  Report Type: Other
  Country: CN (occurrence: CN)
  Receive Date: 20190612
  Receipt Date: 20190612
  Transmission Date: 20190711
  Serious: Yes (Hospitalization, Other)
  Sender: FDA-Public Use
  Company Number: CN-VISTAPHARM, INC.-VER201906-000357

PATIENT
  Age: 62 Year
  Sex: Female

DRUGS (11)
  1. VALPROIC ACID. [Suspect]
     Active Substance: VALPROIC ACID
     Indication: MUSCLE SPASMS
     Dosage: 0.4 MG/40 ML
     Route: 041
  2. ROPIVACAINE. [Suspect]
     Active Substance: ROPIVACAINE HYDROCHLORIDE
     Indication: CANCER PAIN
     Dosage: 1.25 MG/ML
     Route: 037
  3. ROPIVACAINE. [Suspect]
     Active Substance: ROPIVACAINE HYDROCHLORIDE
     Dosage: LESS THAN OR EQUAL TO 15 MG PER DAY
     Route: 037
  4. GABAPENTIN. [Concomitant]
     Active Substance: GABAPENTIN
     Indication: CANCER PAIN
     Dosage: 900 MG
     Route: 048
  5. OXYCODONE [Suspect]
     Active Substance: OXYCODONE
     Indication: CANCER PAIN
     Dosage: 120 MG EVERY 12 HOURS
     Route: 048
  6. FLURBIPROFEN AXETIL [Concomitant]
     Active Substance: FLURBIPROFEN AXETIL
     Indication: CANCER PAIN
     Dosage: 50 MG
     Route: 048
  7. MORPHINE [Suspect]
     Active Substance: MORPHINE
     Dosage: INCREASED TO 12 MG/D BY 1 MONTH LATER
     Route: 037
  8. MORPHINE [Suspect]
     Active Substance: MORPHINE
     Dosage: 45 MG PER DAY
     Route: 037
  9. MORPHINE [Suspect]
     Active Substance: MORPHINE
     Dosage: BELOW 30 MG PER DAY
     Route: 037
  10. ROPIVACAINE. [Suspect]
     Active Substance: ROPIVACAINE HYDROCHLORIDE
     Dosage: 22.5 MG/ML
     Route: 037
  11. MORPHINE [Suspect]
     Active Substance: MORPHINE
     Indication: CANCER PAIN
     Dosage: 1 MG/ML (IN NORMAL SALINE; 3 MG PER DAY AT FIRST, AND THEN GRADUALLY INCREASED)
     Route: 037

REACTIONS (3)
  - Drug ineffective [Unknown]
  - Myoclonus [Recovered/Resolved]
  - Drug interaction [Recovered/Resolved]
